FAERS Safety Report 19096070 (Version 1)
Quarter: 2021Q2

REPORT INFORMATION
  Report Type: Spontaneous
  Country: US (occurrence: US)
  Receive Date: 20210405
  Receipt Date: 20210405
  Transmission Date: 20210717
  Serious: No
  Sender: FDA-Public Use
  Company Number: None

PATIENT
  Age: 75 Year
  Sex: Female
  Weight: 63.5 kg

DRUGS (12)
  1. METFORMIN HCL [Concomitant]
     Active Substance: METFORMIN HYDROCHLORIDE
  2. METOPROLOL TARTRATE. [Concomitant]
     Active Substance: METOPROLOL TARTRATE
  3. ASPIRIN 81 [Concomitant]
     Active Substance: ASPIRIN
  4. OLMESARTAN [Concomitant]
     Active Substance: OLMESARTAN
  5. VITAMIN D [Concomitant]
     Active Substance: VITAMIN D NOS
  6. CALCIUM + D [Concomitant]
     Active Substance: CALCIUM\VITAMIN D
  7. ALENDRONATE SODIUM. [Concomitant]
     Active Substance: ALENDRONATE SODIUM
  8. MAGNESIUM CHLORIDE. [Concomitant]
     Active Substance: MAGNESIUM CHLORIDE
  9. NORCO [Concomitant]
     Active Substance: ACETAMINOPHEN\HYDROCODONE BITARTRATE
  10. IMATINIB MESYLATE. [Suspect]
     Active Substance: IMATINIB MESYLATE
     Indication: CHRONIC MYELOID LEUKAEMIA
     Route: 048
     Dates: start: 20210311
  11. OMEPRAZOLE. [Concomitant]
     Active Substance: OMEPRAZOLE
  12. HYDROCHLOROTHIAZIDE. [Concomitant]
     Active Substance: HYDROCHLOROTHIAZIDE

REACTIONS (5)
  - Vomiting [None]
  - Limb mass [None]
  - Asthenia [None]
  - Nausea [None]
  - Swelling of eyelid [None]

NARRATIVE: CASE EVENT DATE: 20210405
